FAERS Safety Report 7025588-6 (Version None)
Quarter: 2010Q4

REPORT INFORMATION
  Report Type: 
  Country: None (occurrence: None)
  Receive Date: 20101003
  Receipt Date: 20100928
  Transmission Date: 20110411
  Serious: Yes (Death)
  Sender: FDA-Public Use
  Company Number: PHHY2010US64204

PATIENT
  Sex: Female

DRUGS (1)
  1. EXJADE [Suspect]
     Indication: ACUTE MYELOID LEUKAEMIA
     Dosage: 1000 MG, QD
     Route: 048
     Dates: start: 20100429, end: 20100727

REACTIONS (2)
  - NEUTROPENIA [None]
  - PYREXIA [None]
